FAERS Safety Report 6493055-4 (Version None)
Quarter: 2009Q4

REPORT INFORMATION
  Report Type: 
  Country: None (occurrence: None)
  Receive Date: 20091214
  Receipt Date: 20091208
  Transmission Date: 20100525
  Serious: Yes (Other)
  Sender: FDA-Public Use
  Company Number: US-BAYER-200917460BCC

PATIENT
  Age: 57 Year
  Sex: Male
  Weight: 76 kg

DRUGS (2)
  1. ASPIRIN [Suspect]
     Indication: CHEST PAIN
     Dosage: TOTAL DAILY DOSE: 162 MG  UNIT DOSE: 81 MG
     Dates: start: 20091207
  2. BICALUTAMIDE [Concomitant]
     Route: 065

REACTIONS (1)
  - BLOOD URINE PRESENT [None]
